FAERS Safety Report 15707936 (Version 3)
Quarter: 2019Q1

REPORT INFORMATION
  Report Type: Spontaneous
  Country: CZ (occurrence: CZ)
  Receive Date: 20181211
  Receipt Date: 20190215
  Transmission Date: 20190417
  Serious: Yes (Hospitalization, Other)
  Sender: FDA-Public Use
  Company Number: CZ-AUROBINDO-AUR-APL-2018-059474

PATIENT

DRUGS (2)
  1. LINEZOLID. [Suspect]
     Active Substance: LINEZOLID
     Indication: PLEURAL FIBROSIS
  2. LINEZOLID. [Suspect]
     Active Substance: LINEZOLID
     Indication: MYCOBACTERIUM ABSCESSUS INFECTION
     Dosage: UNK
     Route: 042

REACTIONS (11)
  - Bone marrow failure [Unknown]
  - Kussmaul respiration [Unknown]
  - Vomiting [Unknown]
  - Nausea [Unknown]
  - Lactic acidosis [Recovered/Resolved]
  - Toxicity to various agents [Unknown]
  - Product use in unapproved indication [Unknown]
  - Product use issue [Unknown]
  - Cognitive disorder [Unknown]
  - Neuropathy peripheral [Unknown]
  - Altered state of consciousness [Unknown]
